FAERS Safety Report 17737055 (Version 2)
Quarter: 2024Q4

REPORT INFORMATION
  Report Type: Spontaneous
  Country: IT (occurrence: IT)
  Receive Date: 20200502
  Receipt Date: 20241217
  Transmission Date: 20250114
  Serious: Yes (Other)
  Sender: ACCORD
  Company Number: IT-MLMSERVICE-20200416-2259322-2

PATIENT
  Sex: Male

DRUGS (3)
  1. CAPECITABINE [Suspect]
     Active Substance: CAPECITABINE
     Indication: Disease progression
     Dosage: ONLY METRONOMIC CAPECITABINE
     Dates: end: 201507
  2. GEMCITABINE [Suspect]
     Active Substance: GEMCITABINE
     Indication: Disease progression
     Dates: start: 201411
  3. CAPECITABINE [Suspect]
     Active Substance: CAPECITABINE
     Indication: Disease progression
     Dates: start: 201411

REACTIONS (4)
  - Myelosuppression [Unknown]
  - Anaemia [Unknown]
  - Off label use [Unknown]
  - Thrombocytopenia [Unknown]
